FAERS Safety Report 19447183 (Version 1)
Quarter: 2021Q2

REPORT INFORMATION
  Report Type: Spontaneous
  Country: US (occurrence: US)
  Receive Date: 20210621
  Receipt Date: 20210621
  Transmission Date: 20210717
  Serious: Yes (Death)
  Sender: FDA-Public Use
  Company Number: None

PATIENT
  Age: 60 Year
  Sex: Female

DRUGS (9)
  1. ONDANSETRON [Concomitant]
     Active Substance: ONDANSETRON
  2. ESZOPICLONE. [Concomitant]
     Active Substance: ESZOPICLONE
  3. PREDNISONE. [Concomitant]
     Active Substance: PREDNISONE
  4. VALACYCLOVIR [Concomitant]
     Active Substance: VALACYCLOVIR HYDROCHLORIDE
  5. ALBUTEROL. [Concomitant]
     Active Substance: ALBUTEROL
  6. UDENYCA [Suspect]
     Active Substance: PEGFILGRASTIM-CBQV
     Indication: PRODUCT USED FOR UNKNOWN INDICATION
     Dosage: ?          OTHER FREQUENCY:ONE TIME;?
     Route: 058
     Dates: end: 20210610
  7. LORAZEPAM. [Concomitant]
     Active Substance: LORAZEPAM
  8. OXYCODONE [Concomitant]
     Active Substance: OXYCODONE
  9. AMOXICILLIN. [Concomitant]
     Active Substance: AMOXICILLIN

REACTIONS (1)
  - Death [None]

NARRATIVE: CASE EVENT DATE: 20210610
